FAERS Safety Report 8174331-6 (Version None)
Quarter: 2012Q1

REPORT INFORMATION
  Report Type: 
  Country: None (occurrence: None)
  Receive Date: 20120229
  Receipt Date: 20120220
  Transmission Date: 20120608
  Serious: Yes (Hospitalization, Other)
  Sender: FDA-Public Use
  Company Number: US-BAYER-2011-047535

PATIENT
  Age: 32 Year
  Sex: Female
  Weight: 68 kg

DRUGS (10)
  1. DROSPIRENONE AND ETHINYL ESTRADIOL [Suspect]
     Indication: ORAL CONTRACEPTION
     Dosage: UNK
     Dates: start: 20090201, end: 20110101
  2. CHANTIX [Concomitant]
     Dosage: UNK
     Dates: start: 20080102
  3. NSAID'S [Concomitant]
  4. CIPROFLOXACIN HCL [Concomitant]
     Dosage: 500 MG, UNK
     Dates: start: 20080213
  5. YAZ [Suspect]
     Dosage: UNK
     Dates: start: 20080701, end: 20090201
  6. YASMIN [Suspect]
     Indication: ORAL CONTRACEPTION
     Dosage: UNK
     Dates: start: 20050201, end: 20050801
  7. YASMIN [Suspect]
     Dosage: UNK
     Dates: start: 20080101, end: 20080701
  8. IBUPROFEN BP [Concomitant]
     Dosage: 600 MG, UNK
     Dates: start: 20080213
  9. YAZ [Suspect]
     Indication: ORAL CONTRACEPTION
     Dosage: UNK
     Dates: start: 20070901, end: 20080101
  10. HYDROCODONE BITARTRATE AND ACETAMINOPHEN [Concomitant]
     Dosage: UNK
     Dates: start: 20080213

REACTIONS (6)
  - ABDOMINAL PAIN UPPER [None]
  - CHOLECYSTITIS CHRONIC [None]
  - BILIARY DYSKINESIA [None]
  - CHOLECYSTITIS [None]
  - GALLBLADDER DISORDER [None]
  - EMOTIONAL DISTRESS [None]
